FAERS Safety Report 4780142-1 (Version None)
Quarter: 2005Q3

REPORT INFORMATION
  Report Type: 
  Country: None (occurrence: None)
  Receive Date: 20050927
  Receipt Date: 20050920
  Transmission Date: 20060218
  Serious: Yes (Hospitalization)
  Sender: FDA-Public Use
  Company Number: PHRM2005FR02503

PATIENT
  Age: 64 Year
  Sex: Female
  Weight: 55 kg

DRUGS (5)
  1. TAMOXIFEN CITRATE [Suspect]
  2. 5-FLUOROURACIL + NOVANTRON + CYCLOPHOSPHAMID [Suspect]
     Indication: BREAST CANCER
     Dosage: 6 COURSES
     Route: 042
     Dates: start: 19990615, end: 19991015
  3. ZELITREX                                /DEN/ [Concomitant]
  4. ALLOPURINOL [Concomitant]
  5. FEMARA [Suspect]
     Indication: BREAST CANCER
     Route: 048
     Dates: start: 20050415, end: 20050804

REACTIONS (1)
  - ACUTE LEUKAEMIA [None]
